FAERS Safety Report 5228898-8 (Version None)
Quarter: 2007Q1

REPORT INFORMATION
  Report Type: 
  Country: None (occurrence: None)
  Receive Date: 20070205
  Receipt Date: 20070126
  Transmission Date: 20070707
  Serious: Yes (Hospitalization, Other)
  Sender: FDA-Public Use
  Company Number: 2006AP06040

PATIENT
  Age: 823 Month
  Sex: Female

DRUGS (5)
  1. ARIMIDEX [Suspect]
     Indication: BREAST CANCER
     Route: 048
     Dates: start: 20030101, end: 20070110
  2. ARIMIDEX [Suspect]
     Route: 048
     Dates: start: 20070101
  3. TAXOL [Suspect]
     Dosage: 3 COURSES GIVEN
  4. PARAPLATIN [Suspect]
     Dosage: 3 COURSES GIVEN
  5. ZOMETA [Concomitant]
     Indication: METASTASES TO BONE
     Dates: start: 20060810

REACTIONS (2)
  - DEEP VEIN THROMBOSIS [None]
  - UTERINE CANCER [None]
